FAERS Safety Report 4991129-8 (Version None)
Quarter: 2006Q1

REPORT INFORMATION
  Report Type: 
  Country: None (occurrence: None)
  Receive Date: 20060314
  Receipt Date: 20051121
  Transmission Date: 20060701
  Serious: No
  Sender: FDA-Public Use
  Company Number: 2005-02422

PATIENT
  Age: 55 Year
  Sex: Female
  Weight: 67.1 kg

DRUGS (4)
  1. VELCADE [Suspect]
     Indication: MULTIPLE MYELOMA
     Dosage: 2.30 MG, INTRAVENOUS
     Route: 042
     Dates: start: 20050801, end: 20051107
  2. DIOVAN [Concomitant]
  3. ACYCLOVIR [Concomitant]
  4. BACITRACIN (BACITRACIN) [Concomitant]

REACTIONS (6)
  - ANOREXIA [None]
  - DIARRHOEA [None]
  - NAUSEA [None]
  - NEUROPATHY PERIPHERAL [None]
  - STOMACH DISCOMFORT [None]
  - WEIGHT DECREASED [None]
